FAERS Safety Report 15904777 (Version 5)
Quarter: 2019Q1

REPORT INFORMATION
  Report Type: Report from Study
  Country: FI (occurrence: FI)
  Receive Date: 20190204
  Receipt Date: 20190227
  Transmission Date: 20190417
  Serious: Yes (Hospitalization, Other)
  Sender: FDA-Public Use
  Company Number: FI-MYLANLABS-2019M1010378

PATIENT
  Age: 72 Year
  Sex: Female

DRUGS (1)
  1. LEPONEX [Suspect]
     Active Substance: CLOZAPINE
     Indication: PSYCHOTIC DISORDER
     Dosage: 150 MILLIGRAM, QD
     Dates: start: 201811, end: 20190130

REACTIONS (8)
  - Blast cells [Unknown]
  - Lymphocyte morphology abnormal [Unknown]
  - White blood cell count decreased [Recovered/Resolved]
  - White blood cell count increased [Recovering/Resolving]
  - Hospitalisation [Unknown]
  - Neutrophil count increased [Unknown]
  - Agranulocytosis [Not Recovered/Not Resolved]
  - Infection [Recovered/Resolved]

NARRATIVE: CASE EVENT DATE: 2019
